FAERS Safety Report 6903549-2 (Version None)
Quarter: 2010Q3

REPORT INFORMATION
  Report Type: 
  Country: None (occurrence: None)
  Receive Date: 20100803
  Receipt Date: 20081022
  Transmission Date: 20110219
  Serious: No
  Sender: FDA-Public Use
  Company Number: US-PFIZER INC-2008089174

PATIENT
  Sex: Female

DRUGS (11)
  1. LYRICA [Suspect]
     Indication: NEURALGIA
     Dates: start: 20080901
  2. ATENOLOL [Concomitant]
  3. ZOLPIDEM TARTRATE [Concomitant]
  4. NIFEDICAL [Concomitant]
  5. PREVACID [Concomitant]
  6. CELEBREX [Concomitant]
  7. LOVASTATIN [Concomitant]
  8. SEROQUEL [Concomitant]
  9. GABAPENTIN [Concomitant]
  10. SERTRALINE HYDROCHLORIDE [Concomitant]
  11. DRUG, UNSPECIFIED [Concomitant]

REACTIONS (3)
  - INCORRECT DOSE ADMINISTERED [None]
  - UNEVALUABLE EVENT [None]
  - WEIGHT INCREASED [None]
